FAERS Safety Report 6090865-2 (Version None)
Quarter: 2009Q1

REPORT INFORMATION
  Report Type: 
  Country: None (occurrence: None)
  Receive Date: 20090224
  Receipt Date: 20090212
  Transmission Date: 20090719
  Serious: No
  Sender: FDA-Public Use
  Company Number: US-ABBOTT-09P-163-0503277-00

PATIENT
  Sex: Male

DRUGS (11)
  1. SIMCOR [Suspect]
     Indication: HYPERCHOLESTEROLAEMIA
     Dosage: 1 - 500/20MG TAB DAILY AT BEDTIME
     Route: 048
     Dates: start: 20090206
  2. ASPIRIN [Concomitant]
     Indication: DRUG USE FOR UNKNOWN INDICATION
  3. PLAVIX [Concomitant]
     Indication: DRUG USE FOR UNKNOWN INDICATION
  4. CITALOPRAM HYDROBROMIDE [Concomitant]
     Indication: DRUG USE FOR UNKNOWN INDICATION
     Route: 048
  5. OMEPRAZOLE [Concomitant]
     Indication: DRUG USE FOR UNKNOWN INDICATION
     Route: 048
  6. LISINOPRIL AND HYDROCHLOROTHIAZIDE [Concomitant]
     Indication: DRUG USE FOR UNKNOWN INDICATION
  7. ROPINIROLE [Concomitant]
     Indication: DRUG USE FOR UNKNOWN INDICATION
     Route: 048
  8. TYLENOL [Concomitant]
     Indication: BACK PAIN
  9. TYLENOL [Concomitant]
     Indication: HEADACHE
  10. IBUPROFEN TABLETS [Concomitant]
     Indication: BACK PAIN
  11. IBUPROFEN TABLETS [Concomitant]
     Indication: HEADACHE

REACTIONS (4)
  - FLUSHING [None]
  - MALAISE [None]
  - PAIN [None]
  - SKIN BURNING SENSATION [None]
